FAERS Safety Report 8589258-5 (Version None)
Quarter: 2012Q3

REPORT INFORMATION
  Report Type: 
  Country: None (occurrence: None)
  Receive Date: 20120813
  Receipt Date: 20120803
  Transmission Date: 20120928
  Serious: Yes (Hospitalization)
  Sender: FDA-Public Use
  Company Number: US-JNJFOC-20120708601

PATIENT
  Sex: Male
  Weight: 66.68 kg

DRUGS (6)
  1. PREDNISONE TAB [Concomitant]
     Route: 065
  2. CALCIUM CARBONATE [Concomitant]
     Route: 065
  3. ZYTIGA [Suspect]
     Indication: PROSTATE CANCER
     Route: 048
     Dates: start: 20120615, end: 20120705
  4. FERROUS SULFATE TAB [Concomitant]
     Route: 065
  5. PRILOSEC [Concomitant]
     Route: 065
  6. LORTAB [Concomitant]
     Route: 065

REACTIONS (1)
  - HAEMOGLOBIN DECREASED [None]
